FAERS Safety Report 7739544-3 (Version None)
Quarter: 2011Q3

REPORT INFORMATION
  Report Type: 
  Country: None (occurrence: None)
  Receive Date: 20110909
  Receipt Date: 20110907
  Transmission Date: 20111222
  Serious: Yes (Life-Threatening, Hospitalization, Other)
  Sender: FDA-Public Use
  Company Number: FR-PFIZER INC-2011209519

PATIENT
  Age: 83 Year
  Sex: Male

DRUGS (10)
  1. ALDACTONE [Suspect]
     Route: 048
  2. IKOREL [Suspect]
     Indication: CARDIORENAL SYNDROME
     Dosage: 20 MG, 2X/DAY
     Route: 048
  3. AMLODIPINE BESYLATE AND OLMESARTAN MEDOXOMIL [Suspect]
     Indication: CARDIORENAL SYNDROME
     Dosage: 5/20 MG, 1X/DAY
     Route: 048
  4. FUROSEMIDE [Suspect]
     Indication: CARDIORENAL SYNDROME
     Route: 048
  5. CORDARONE [Concomitant]
  6. EUPRESSYL [Concomitant]
  7. NITROGLYCERIN [Concomitant]
  8. POTASSIUM CHLORIDE [Concomitant]
  9. SPECIAFOLDINE [Concomitant]
  10. XANAX [Concomitant]

REACTIONS (3)
  - RENAL FAILURE [None]
  - HYPERKALAEMIA [None]
  - LOWER GASTROINTESTINAL HAEMORRHAGE [None]
